FAERS Safety Report 9304229 (Version 2)
Quarter: 2013Q2

REPORT INFORMATION
  Report Type: Spontaneous
  Country: TR (occurrence: TR)
  Receive Date: 20130522
  Receipt Date: 20130617
  Transmission Date: 20140414
  Serious: Yes (Hospitalization)
  Sender: FDA-Public Use
  Company Number: TR-ABBOTT-13P-161-1091883-00

PATIENT
  Age: 65 Year
  Sex: Female
  Weight: 77 kg

DRUGS (2)
  1. HUMIRA [Suspect]
     Indication: ANKYLOSING SPONDYLITIS
     Route: 058
     Dates: start: 20130308, end: 20130517
  2. ACCUZIDE (KINAPRIL HCL + HYDROCHLORAZID) [Concomitant]
     Indication: HYPERTENSION
     Route: 048
     Dates: start: 20130210

REACTIONS (2)
  - Arteriospasm coronary [Unknown]
  - Tachycardia [Unknown]
